FAERS Safety Report 7603491-8 (Version None)
Quarter: 2011Q3

REPORT INFORMATION
  Report Type: 
  Country: None (occurrence: None)
  Receive Date: 20110712
  Receipt Date: 20100329
  Transmission Date: 20111222
  Serious: Yes (Death, Hospitalization)
  Sender: FDA-Public Use
  Company Number: US-AMGEN-US357021

PATIENT
  Age: 87 Year
  Sex: Male
  Weight: 95.3 kg

DRUGS (13)
  1. NPLATE [Suspect]
     Dosage: UNK
     Dates: end: 20090601
  2. NPLATE [Suspect]
     Indication: IDIOPATHIC THROMBOCYTOPENIC PURPURA
     Dosage: UNK UNK, UNK
     Route: 058
     Dates: start: 20090701, end: 20090720
  3. PREDNISONE [Concomitant]
  4. CARBIDOPA AND LEVODOPA [Concomitant]
  5. BETHANECHOL CHLORIDE [Concomitant]
  6. ESCITALOPRAM [Concomitant]
  7. AMLODIPINE BESYLATE [Concomitant]
  8. UNSPECIFIED VITAMINS [Concomitant]
  9. ATORVASTATIN CALCIUM [Concomitant]
  10. LEVOTHYROXINE SODIUM [Concomitant]
  11. TAMSULOSIN HCL [Concomitant]
  12. BUMETANIDE [Concomitant]
  13. NPLATE [Suspect]

REACTIONS (5)
  - RENAL FAILURE CHRONIC [None]
  - SEPSIS [None]
  - CHRONIC OBSTRUCTIVE PULMONARY DISEASE [None]
  - CARDIAC DEATH [None]
  - MYOCARDIAL INFARCTION [None]
